FAERS Safety Report 6961365-X (Version None)
Quarter: 2010Q3

REPORT INFORMATION
  Report Type: 
  Country: None (occurrence: None)
  Receive Date: 20100901
  Receipt Date: 20100827
  Transmission Date: 20110219
  Serious: Yes (Other)
  Sender: FDA-Public Use
  Company Number: B0672002A

PATIENT
  Sex: Male

DRUGS (4)
  1. AUGMENTIN '125' [Suspect]
     Dosage: 1UNIT SINGLE DOSE
     Route: 042
     Dates: start: 20100326, end: 20100326
  2. DIPRIVAN [Concomitant]
     Dosage: 1UNIT SINGLE DOSE
     Route: 042
     Dates: start: 20100326, end: 20100326
  3. KETAMINE HCL [Concomitant]
     Dosage: 1UNIT SINGLE DOSE
     Route: 042
     Dates: start: 20100326, end: 20100326
  4. ULTIVA [Concomitant]
     Dosage: 1UNIT SINGLE DOSE
     Route: 042
     Dates: start: 20100326, end: 20100326

REACTIONS (7)
  - ANAPHYLACTIC SHOCK [None]
  - BRONCHOSPASM [None]
  - DRUG HYPERSENSITIVITY [None]
  - GENERALISED ERYTHEMA [None]
  - SKIN TEST POSITIVE [None]
  - SYNCOPE [None]
  - TACHYCARDIA [None]
